FAERS Safety Report 15258834 (Version 2)
Quarter: 2018Q4

REPORT INFORMATION
  Report Type: Report from Study
  Country: FR (occurrence: FR)
  Receive Date: 20180809
  Receipt Date: 20181016
  Transmission Date: 20190204
  Serious: Yes (Hospitalization)
  Sender: FDA-Public Use
  Company Number: FR-ROCHE-2162733

PATIENT
  Age: 81 Year
  Sex: Male
  Weight: 68 kg

DRUGS (8)
  1. VINCRISTINE [Concomitant]
     Active Substance: VINCRISTINE
     Indication: MANTLE CELL LYMPHOMA
     Dosage: ADMINISTERED IN 3 WEEK CYCLES FOR 3 CYCLES
     Route: 065
     Dates: start: 20171009, end: 20180209
  2. LENALIDOMIDE [Suspect]
     Active Substance: LENALIDOMIDE
     Indication: MANTLE CELL LYMPHOMA
     Dosage: LAST DOSE ADMINISTRATION BEFORE SERIOUS ADVERSE EVENT  (SAE): 24/JUL/2018
     Route: 065
     Dates: start: 20180515
  3. DEXAMETHASONE. [Concomitant]
     Active Substance: DEXAMETHASONE
     Indication: MANTLE CELL LYMPHOMA
     Dosage: ADMINISTERED IN 3 WEEK CYCLES FOR 4 CYCLES ALTERNATING
     Route: 065
     Dates: start: 20171009, end: 20180209
  4. DOXORUBICIN [Concomitant]
     Active Substance: DOXORUBICIN
     Indication: MANTLE CELL LYMPHOMA
     Dosage: ADMINISTERED IN 3 WEEK CYCLES FOR 3 CYCLES
     Route: 065
     Dates: start: 20171009, end: 20180209
  5. PREDNISONE. [Concomitant]
     Active Substance: PREDNISONE
     Indication: MANTLE CELL LYMPHOMA
     Dosage: ADMINISTERED IN 3 WEEK CYCLES FOR 3 CYCLES
     Route: 065
     Dates: start: 20171009, end: 20180209
  6. CYTARABINE. [Concomitant]
     Active Substance: CYTARABINE
     Indication: MANTLE CELL LYMPHOMA
     Dosage: ADMINISTERED IN 3 WEEK CYCLES FOR 4 CYCLES ALTERNATING
     Route: 065
     Dates: start: 20171009, end: 20180209
  7. RITUXIMAB. [Suspect]
     Active Substance: RITUXIMAB
     Indication: MANTLE CELL LYMPHOMA
     Dosage: 13 CYCLES OF SUBCUTANEOUS RITUXIMAB 1400 MG ADMINISTERED IN 8 WEEK CYCLES + 26 CYCLES LENALIDOMIDE 1
     Route: 058
     Dates: start: 20180514
  8. CYCLOPHOSPHAMIDE. [Concomitant]
     Active Substance: CYCLOPHOSPHAMIDE
     Indication: MANTLE CELL LYMPHOMA
     Dosage: ADMINISTERED IN 3 WEEK CYCLES FOR 3 CYCLES
     Route: 065
     Dates: start: 20171009, end: 20180209

REACTIONS (1)
  - Diarrhoea [Recovered/Resolved]

NARRATIVE: CASE EVENT DATE: 20180728
